FAERS Safety Report 9331796 (Version 1)
Quarter: 2013Q2

REPORT INFORMATION
  Report Type: Spontaneous
  Country: US (occurrence: None)
  Receive Date: 20130603
  Receipt Date: 20130603
  Transmission Date: 20140414
  Serious: Yes (Hospitalization)
  Sender: FDA-Public Use
  Company Number: US-011826

PATIENT
  Age: 33 Year
  Sex: Female

DRUGS (4)
  1. MENOPUR [Suspect]
     Indication: INFERTILITY
  2. CHORIOGONADOTROPIN ALFA [Suspect]
     Indication: PRODUCT USED FOR UNKNOWN INDICATION
  3. CLOMID [Suspect]
     Indication: ANOVULATORY CYCLE
  4. GONAL-F [Suspect]
     Indication: INFERTILITY
     Dates: start: 2010

REACTIONS (1)
  - Uterine leiomyoma [None]
